FAERS Safety Report 7343039-9 (Version None)
Quarter: 2011Q1

REPORT INFORMATION
  Report Type: 
  Country: None (occurrence: None)
  Receive Date: 20110310
  Receipt Date: 20110223
  Transmission Date: 20110831
  Serious: Yes (Other)
  Sender: FDA-Public Use
  Company Number: CA-JNJFOC-20110300332

PATIENT
  Sex: Male
  Weight: 71 kg

DRUGS (13)
  1. CRESTOR [Concomitant]
     Route: 048
  2. HYDROCHLOROTHIAZIDE [Concomitant]
     Route: 048
  3. FOLIC ACID [Concomitant]
     Route: 048
  4. GOLIMUMAB [Suspect]
     Indication: RHEUMATOID ARTHRITIS
     Route: 058
  5. GOLIMUMAB [Suspect]
     Route: 058
  6. SURFAK [Concomitant]
     Route: 048
  7. METHOTREXATE [Suspect]
     Indication: RHEUMATOID ARTHRITIS
     Route: 048
  8. EXTRA STRENGTH TYLENOL [Concomitant]
     Route: 048
  9. FINASTERIDE [Concomitant]
     Route: 048
  10. PREDNISONE TAB [Concomitant]
     Route: 048
  11. DIDROCAL [Concomitant]
     Route: 048
  12. METHOTREXATE [Concomitant]
     Route: 048
  13. METAMUCIL-2 [Concomitant]
     Route: 048

REACTIONS (2)
  - GASTRIC CANCER [None]
  - ANAEMIA [None]
